FAERS Safety Report 6647683-3 (Version None)
Quarter: 2010Q1

REPORT INFORMATION
  Report Type: 
  Country: None (occurrence: None)
  Receive Date: 20100323
  Receipt Date: 20100323
  Transmission Date: 20100710
  Serious: Yes (Hospitalization)
  Sender: FDA-Public Use
  Company Number: None

PATIENT
  Age: 68 Year
  Sex: Male
  Weight: 65.318 kg

DRUGS (1)
  1. CELEXA [Suspect]
     Indication: DEPRESSION
     Dosage: 40 MG 1-(ONE) DAY
     Dates: start: 20091101, end: 20100201

REACTIONS (15)
  - ABDOMINAL PAIN [None]
  - AGITATION [None]
  - ALCOHOL INTOLERANCE [None]
  - ANXIETY [None]
  - DIARRHOEA [None]
  - DRY MOUTH [None]
  - DYSPEPSIA [None]
  - FATIGUE [None]
  - LIBIDO DECREASED [None]
  - NAUSEA [None]
  - SOMNOLENCE [None]
  - THIRST [None]
  - TREMOR [None]
  - WEIGHT DECREASED [None]
  - YAWNING [None]
